FAERS Safety Report 25236481 (Version 2)
Quarter: 2025Q2

REPORT INFORMATION
  Report Type: Spontaneous
  Country: CA (occurrence: CA)
  Receive Date: 20250424
  Receipt Date: 20250429
  Transmission Date: 20250717
  Serious: Yes (Death)
  Sender: MERCK SHARP & DOHME LLC
  Company Number: CA-PFIZER INC-PV202400170368

PATIENT
  Age: 54 Year
  Sex: Female

DRUGS (3)
  1. TUCATINIB [Suspect]
     Active Substance: TUCATINIB
     Indication: Breast cancer metastatic
     Dosage: 300 MG, 1X/DAY
     Route: 065
  2. TRASTUZUMAB [Concomitant]
     Active Substance: TRASTUZUMAB
     Route: 065
  3. CAPECITABINE [Concomitant]
     Active Substance: CAPECITABINE
     Route: 065

REACTIONS (2)
  - Death [Fatal]
  - Off label use [Unknown]
